FAERS Safety Report 17968698 (Version 1)
Quarter: 2020Q3

REPORT INFORMATION
  Report Type: Spontaneous
  Country: US (occurrence: US)
  Receive Date: 20200701
  Receipt Date: 20200701
  Transmission Date: 20201103
  Serious: No
  Sender: FDA-Public Use
  Company Number: None

PATIENT
  Age: 66 Year
  Sex: Male
  Weight: 104 kg

DRUGS (8)
  1. AMLODIPINE 5MG(HOME MED) [Concomitant]
  2. REMDESIVIR. [Suspect]
     Active Substance: REMDESIVIR
     Indication: SARS-COV-2 TEST POSITIVE
     Route: 042
     Dates: start: 20200625, end: 20200628
  3. ROCEPHIN 1G IV DAILY [Concomitant]
     Dates: start: 20200625, end: 20200630
  4. AZITHROMYCIN 500MG IV DAILY [Concomitant]
     Dates: start: 20200625, end: 20200630
  5. LOVENOX 100MG EVERY 12 HOURS [Concomitant]
     Dates: start: 20200625, end: 20200630
  6. LANTUS 5?10 UNITS [Concomitant]
     Dates: start: 20200628, end: 20200630
  7. DEXAMETHASONE 6MG IV DAILY [Concomitant]
     Dates: start: 20200625, end: 20200630
  8. PROTONIX 40MG IV DAILY [Concomitant]
     Dates: start: 20200626, end: 20200630

REACTIONS (4)
  - Liver function test increased [None]
  - Glomerular filtration rate decreased [None]
  - Aspartate aminotransferase increased [None]
  - Alanine aminotransferase increased [None]

NARRATIVE: CASE EVENT DATE: 20200629
